FAERS Safety Report 6134264-3 (Version None)
Quarter: 2009Q1

REPORT INFORMATION
  Report Type: 
  Country: None (occurrence: None)
  Receive Date: 20090325
  Receipt Date: 20090310
  Transmission Date: 20090719
  Serious: Yes (Death)
  Sender: FDA-Public Use
  Company Number: 09-000386

PATIENT
  Age: 95 Year
  Sex: Female

DRUGS (1)
  1. DURICEF [Suspect]
     Indication: C-REACTIVE PROTEIN INCREASED
     Dosage: ORAL
     Route: 048
     Dates: start: 20081128, end: 20081130

REACTIONS (2)
  - DRUG DOSE OMISSION [None]
  - DYSPNOEA [None]
